FAERS Safety Report 20589778 (Version 1)
Quarter: 2022Q1

REPORT INFORMATION
  Report Type: Spontaneous
  Country: US (occurrence: US)
  Receive Date: 20220314
  Receipt Date: 20220314
  Transmission Date: 20220424
  Serious: No
  Sender: FDA-Public Use
  Company Number: US-GLENMARK PHARMACEUTICALS-2021GMK067048

PATIENT

DRUGS (3)
  1. CALCIPOTRIENE [Suspect]
     Active Substance: CALCIPOTRIENE
     Indication: Pain in extremity
     Dosage: 2 TO 3 TIMES A DAY
     Route: 061
  2. CALCIPOTRIENE [Suspect]
     Active Substance: CALCIPOTRIENE
     Indication: Arthralgia
  3. CALCIPOTRIENE [Suspect]
     Active Substance: CALCIPOTRIENE
     Indication: Neuralgia

REACTIONS (1)
  - Drug ineffective for unapproved indication [Unknown]
